FAERS Safety Report 6223595-4 (Version None)
Quarter: 2009Q2

REPORT INFORMATION
  Report Type: 
  Country: None (occurrence: None)
  Receive Date: 20090610
  Receipt Date: 20090525
  Transmission Date: 20091009
  Serious: Yes (Other)
  Sender: FDA-Public Use
  Company Number: 8046980

PATIENT
  Sex: Female

DRUGS (2)
  1. XYZAL [Suspect]
  2. BRUFEN /00109201/ [Concomitant]

REACTIONS (4)
  - CONVULSION [None]
  - SWELLING [None]
  - UNRESPONSIVE TO STIMULI [None]
  - URINARY INCONTINENCE [None]
